FAERS Safety Report 9943506 (Version 2)
Quarter: 2014Q1

REPORT INFORMATION
  Report Type: Report from Study
  Country: US (occurrence: US)
  Receive Date: 20140303
  Receipt Date: 20140303
  Transmission Date: 20141002
  Serious: No
  Sender: FDA-Public Use
  Company Number: US-ABBVIE-12P-163-0904679-00

PATIENT
  Sex: Male

DRUGS (1)
  1. HUMIRA [Suspect]
     Indication: PSORIASIS
     Dosage: 2:40MG PENS,  THEN 40 MG EOW
     Route: 058
     Dates: start: 20091210

REACTIONS (5)
  - Psoriasis [Unknown]
  - Drug effect decreased [Unknown]
  - Drug ineffective [Unknown]
  - Psoriasis [Unknown]
  - Drug ineffective [Unknown]
